FAERS Safety Report 4785601-3 (Version None)
Quarter: 2005Q4

REPORT INFORMATION
  Report Type: 
  Country: None (occurrence: None)
  Receive Date: 20051003
  Receipt Date: 20050830
  Transmission Date: 20060501
  Serious: Yes (Death)
  Sender: FDA-Public Use
  Company Number: US-BOEHRINGER INGELHEIM PHARMACEUTICALS, INC.-2005-BP-15243BP

PATIENT
  Sex: Male
  Weight: 65.77 kg

DRUGS (4)
  1. TIPRANAVIR / RITONAVIR CAPSULES [Suspect]
     Indication: HIV INFECTION
     Dosage: TPV 1000 MG/R 400 MG
     Route: 048
     Dates: start: 20030829, end: 20050829
  2. TENOFOVIR [Suspect]
     Indication: HIV INFECTION
     Route: 048
     Dates: start: 20030515, end: 20050829
  3. EFAVIRENZ [Suspect]
     Indication: HIV INFECTION
     Route: 048
     Dates: start: 20030515, end: 20030829
  4. DAPSONE [Concomitant]
     Indication: INFECTION PROPHYLAXIS
     Route: 048
     Dates: start: 20050525, end: 20050829

REACTIONS (2)
  - CEREBRAL HAEMATOMA [None]
  - DEATH [None]
